FAERS Safety Report 13956592 (Version 3)
Quarter: 2018Q4

REPORT INFORMATION
  Report Type: Spontaneous
  Country: JP (occurrence: JP)
  Receive Date: 20170911
  Receipt Date: 20181221
  Transmission Date: 20190204
  Serious: Yes (Death, Hospitalization, Other)
  Sender: FDA-Public Use
  Company Number: JP-BAYER-2017-169779

PATIENT
  Age: 69 Year
  Sex: Male
  Weight: 55.3 kg

DRUGS (7)
  1. XOFIGO [Suspect]
     Active Substance: RADIUM RA-223 DICHLORIDE
     Indication: METASTASES TO BONE
     Dosage: DAILY DOSE 55 KBQ
     Route: 042
     Dates: start: 20170728, end: 20170728
  2. ZYTIGA [Concomitant]
     Active Substance: ABIRATERONE ACETATE
     Dosage: DAILY DOSE 4 DF
     Route: 048
  3. GONAX [Concomitant]
     Active Substance: DEGARELIX
  4. LOXONIN [Concomitant]
     Active Substance: LOXOPROFEN SODIUM
  5. XOFIGO [Suspect]
     Active Substance: RADIUM RA-223 DICHLORIDE
     Indication: PROSTATE CANCER STAGE IV
     Dosage: DAILY DOSE 55 KBQ
     Route: 042
     Dates: start: 20170630, end: 20170630
  6. PREDNISOLONE. [Concomitant]
     Active Substance: PREDNISOLONE
     Dosage: DAILY DOSE 2 DF
     Route: 048
  7. DENOTAS [Concomitant]
     Active Substance: CALCIUM CARBONATE\CHOLECALCIFEROL\MAGNESIUM CARBONATE
     Dosage: DAILY DOSE 2 DF
     Route: 048

REACTIONS (3)
  - Prostate cancer stage IV [Fatal]
  - Metastases to bone [Not Recovered/Not Resolved]
  - Metastases to liver [Not Recovered/Not Resolved]

NARRATIVE: CASE EVENT DATE: 20170817
